FAERS Safety Report 5012043-8 (Version None)
Quarter: 2006Q2

REPORT INFORMATION
  Report Type: 
  Country: None (occurrence: None)
  Receive Date: 20060526
  Receipt Date: 20060518
  Transmission Date: 20061013
  Serious: Yes (Other)
  Sender: FDA-Public Use
  Company Number: US-GLAXOSMITHKLINE-A0606877A

PATIENT
  Age: 34 Year
  Sex: Female

DRUGS (1)
  1. LAMOTRIGINE [Suspect]
     Indication: NARCOLEPSY
     Dosage: 200MG PER DAY
     Route: 048
     Dates: start: 20010504

REACTIONS (1)
  - ABORTION SPONTANEOUS [None]
